FAERS Safety Report 20727548 (Version 1)
Quarter: 2022Q2

REPORT INFORMATION
  Report Type: Spontaneous
  Country: US (occurrence: None)
  Receive Date: 20220419
  Receipt Date: 20220419
  Transmission Date: 20220720
  Serious: No
  Sender: FDA-Public Use
  Company Number: US-ROCHE-2937470

PATIENT
  Sex: Female

DRUGS (1)
  1. AVASTIN [Suspect]
     Active Substance: BEVACIZUMAB
     Indication: Ovarian cancer
     Dosage: STRENGTH: 25MG/ML, ON DAY 1 EVERY 21 DAYS
     Route: 042
     Dates: start: 202107

REACTIONS (13)
  - Oral mucosal blistering [Unknown]
  - Nasal dryness [Unknown]
  - Weight increased [Unknown]
  - Arthralgia [Unknown]
  - Pain in extremity [Unknown]
  - Dysgeusia [Unknown]
  - Blood pressure increased [Unknown]
  - Abdominal distension [Unknown]
  - Nausea [Unknown]
  - Abdominal pain upper [Unknown]
  - Urine odour abnormal [Unknown]
  - Decreased appetite [Unknown]
  - Epistaxis [Unknown]
